FAERS Safety Report 15985288 (Version 2)
Quarter: 2019Q1

REPORT INFORMATION
  Report Type: Spontaneous
  Country: ZA (occurrence: ZA)
  Receive Date: 20190220
  Receipt Date: 20190301
  Transmission Date: 20190418
  Serious: Yes (Hospitalization)
  Sender: FDA-Public Use
  Company Number: ZA-ABBVIE-19S-143-2670365-00

PATIENT
  Sex: Female

DRUGS (4)
  1. DURABAC [Concomitant]
     Active Substance: ACETAMINOPHEN\CAFFEINE\PHENYLTOLOXAMINE CITRATE\SALICYLAMIDE
     Indication: PRODUCT USED FOR UNKNOWN INDICATION
  2. ATAZANAVIR. [Concomitant]
     Active Substance: ATAZANAVIR
     Indication: PRODUCT USED FOR UNKNOWN INDICATION
  3. TENEMINE [Concomitant]
     Indication: PRODUCT USED FOR UNKNOWN INDICATION
  4. NORVIR [Suspect]
     Active Substance: RITONAVIR
     Indication: PRODUCT USED FOR UNKNOWN INDICATION
     Route: 048

REACTIONS (5)
  - Meningitis [Unknown]
  - Emotional poverty [Unknown]
  - General physical health deterioration [Unknown]
  - Pain of skin [Recovered/Resolved]
  - Pruritus [Recovered/Resolved]
